FAERS Safety Report 6132705-9 (Version None)
Quarter: 2009Q1

REPORT INFORMATION
  Report Type: 
  Country: None (occurrence: None)
  Receive Date: 20090325
  Receipt Date: 20090325
  Transmission Date: 20090719
  Serious: Yes (Life-Threatening, Disabling, Other)
  Sender: FDA-Public Use
  Company Number: None

PATIENT
  Sex: Male
  Weight: 63.5036 kg

DRUGS (4)
  1. HUMIRA [Suspect]
     Indication: RHEUMATOID ARTHRITIS
     Dosage: 1 SHOT A WEEK 6 TIMES
  2. ETHAMBUTOL HCL [Concomitant]
  3. CLARITHROMYC [Concomitant]
  4. MYCOBALN [Concomitant]

REACTIONS (2)
  - ILL-DEFINED DISORDER [None]
  - TUBERCULOSIS [None]
